FAERS Safety Report 5862997-2 (Version None)
Quarter: 2008Q3

REPORT INFORMATION
  Report Type: 
  Country: None (occurrence: None)
  Receive Date: 20080828
  Receipt Date: 20080826
  Transmission Date: 20090109
  Serious: Yes (Other)
  Sender: FDA-Public Use
  Company Number: DE-AVENTIS-200812172DE

PATIENT
  Age: 59 Year
  Sex: Female
  Weight: 101 kg

DRUGS (4)
  1. ARAVA [Suspect]
     Route: 048
     Dates: start: 20070501, end: 20080808
  2. BISOPROLOL PLUS [Concomitant]
     Indication: HYPERTENSION
     Route: 048
     Dates: start: 19980101
  3. DICLOFENAC [Concomitant]
     Dosage: DOSE: 2-3 TABLETS PER DAY
     Route: 048
     Dates: start: 20071001
  4. DICLOFENAC [Concomitant]
     Dosage: DOSE: 2-3 TABLETS PER DAY
     Route: 048
     Dates: start: 20071001

REACTIONS (1)
  - DYSARTHRIA [None]
